FAERS Safety Report 7998340-2 (Version None)
Quarter: 2011Q4

REPORT INFORMATION
  Report Type: 
  Country: None (occurrence: None)
  Receive Date: 20111221
  Receipt Date: 20110727
  Transmission Date: 20120403
  Serious: No
  Sender: FDA-Public Use
  Company Number: US-GLAXOSMITHKLINE-A0938548A

PATIENT
  Sex: Female

DRUGS (7)
  1. LOVAZA [Suspect]
     Indication: BLOOD TRIGLYCERIDES INCREASED
     Dosage: 2CAP TWICE PER DAY
     Route: 048
     Dates: start: 20081101, end: 20110801
  2. FIBER [Concomitant]
  3. LOSARTAN POTASSIUM [Concomitant]
     Dosage: 50MG PER DAY
     Dates: start: 20050101
  4. LIPITOR [Concomitant]
     Dates: start: 20050101
  5. WELLBUTRIN [Concomitant]
     Dosage: 300MG PER DAY
     Dates: start: 20080101
  6. METFORMIN HCL [Concomitant]
     Dosage: 1000MG TWICE PER DAY
     Route: 048
     Dates: start: 20050101
  7. ASPIRIN [Concomitant]

REACTIONS (2)
  - MEDICATION RESIDUE [None]
  - MALABSORPTION [None]
